FAERS Safety Report 5703990-X (Version None)
Quarter: 2008Q2

REPORT INFORMATION
  Report Type: 
  Country: None (occurrence: None)
  Receive Date: 20080414
  Receipt Date: 20080404
  Transmission Date: 20081010
  Serious: Yes (Other)
  Sender: FDA-Public Use
  Company Number: US-JNJFOC-20080401482

PATIENT
  Sex: Female
  Weight: 41.28 kg

DRUGS (9)
  1. REMICADE [Suspect]
     Indication: RHEUMATOID ARTHRITIS
     Dosage: AT WEEK 0, 2, AND 6
     Route: 042
  2. PREDNISONE [Concomitant]
  3. FOLIC ACID [Concomitant]
  4. ARAVA [Concomitant]
  5. DILAUDID [Concomitant]
     Dosage: 2 MG 1-2 TIMES DAILY
  6. CALCIUM + D [Concomitant]
  7. VITAMIN D [Concomitant]
  8. DARVOCET-N 100 [Concomitant]
     Dosage: PRN
  9. RECLAST [Concomitant]

REACTIONS (2)
  - DOUBLE STRANDED DNA ANTIBODY [None]
  - SYSTEMIC LUPUS ERYTHEMATOSUS RASH [None]
